FAERS Safety Report 6962090-1 (Version None)
Quarter: 2010Q3

REPORT INFORMATION
  Report Type: 
  Country: None (occurrence: None)
  Receive Date: 20100902
  Receipt Date: 20100823
  Transmission Date: 20110219
  Serious: Yes (Hospitalization)
  Sender: FDA-Public Use
  Company Number: CA-US-EMD SERONO, INC.-230207J08CAN

PATIENT
  Sex: Female

DRUGS (12)
  1. REBIF [Suspect]
     Indication: RELAPSING-REMITTING MULTIPLE SCLEROSIS
     Dates: start: 20050930, end: 20090101
  2. REBIF [Suspect]
     Dates: start: 20090101, end: 20100101
  3. REBIF [Suspect]
     Dates: start: 20100101, end: 20100101
  4. REBIF [Suspect]
     Dates: start: 20100101
  5. DETROL LA [Concomitant]
  6. VITAMIN D [Concomitant]
  7. MULTI-VITAMIN [Concomitant]
  8. EVISTA [Concomitant]
  9. ACTONEL [Concomitant]
  10. ASPIRIN [Concomitant]
  11. NOVO-METOPROL [Concomitant]
  12. IRON SUPPLEMENT [Concomitant]

REACTIONS (6)
  - CARDIAC SEPTAL DEFECT [None]
  - CHILLS [None]
  - HEADACHE [None]
  - INJECTION SITE ERYTHEMA [None]
  - PARAESTHESIA [None]
  - TREMOR [None]
